FAERS Safety Report 6030992-9 (Version None)
Quarter: 2009Q1

REPORT INFORMATION
  Report Type: 
  Country: None (occurrence: None)
  Receive Date: 20090106
  Receipt Date: 20090106
  Transmission Date: 20090719
  Serious: Yes (Other)
  Sender: FDA-Public Use
  Company Number: None

PATIENT
  Age: 54 Year
  Sex: Female
  Weight: 71.2147 kg

DRUGS (1)
  1. ACTONEL [Suspect]
     Indication: BONE DENSITY DECREASED
     Dosage: 150 MG 1 PER MONTH PO
     Route: 048
     Dates: start: 20081101, end: 20081201

REACTIONS (4)
  - ABASIA [None]
  - BACK PAIN [None]
  - MUSCLE SPASMS [None]
  - MUSCULOSKELETAL CHEST PAIN [None]
